FAERS Safety Report 6074544-3 (Version None)
Quarter: 2009Q1

REPORT INFORMATION
  Report Type: 
  Country: None (occurrence: None)
  Receive Date: 20090206
  Receipt Date: 20090128
  Transmission Date: 20090719
  Serious: Yes (Life-Threatening, Hospitalization)
  Sender: FDA-Public Use
  Company Number: 20096167

PATIENT
  Sex: Female

DRUGS (1)
  1. LIORESAL [Suspect]
     Indication: MUSCLE SPASTICITY
     Dosage: DAILY, INTRATHECAL
     Route: 037

REACTIONS (7)
  - CATHETER RELATED COMPLICATION [None]
  - COMA [None]
  - DEVICE FAILURE [None]
  - DRUG WITHDRAWAL SYNDROME [None]
  - INTRACRANIAL HYPOTENSION [None]
  - MUSCLE RIGIDITY [None]
  - MUSCLE SPASTICITY [None]
